FAERS Safety Report 17040220 (Version 1)
Quarter: 2019Q4

REPORT INFORMATION
  Report Type: Spontaneous
  Country: US (occurrence: US)
  Receive Date: 20191116
  Receipt Date: 20191116
  Transmission Date: 20200122
  Serious: No
  Sender: FDA-Public Use
  Company Number: US-ELI_LILLY_AND_COMPANY-US201911004361

PATIENT
  Age: 50 Year
  Sex: Male

DRUGS (1)
  1. TALTZ [Suspect]
     Active Substance: IXEKIZUMAB
     Indication: PRODUCT USED FOR UNKNOWN INDICATION
     Dosage: 80 MG, UNKNOWN
     Route: 065
     Dates: start: 20191030

REACTIONS (4)
  - Influenza like illness [Unknown]
  - Tremor [Unknown]
  - Tinnitus [Unknown]
  - Lethargy [Unknown]

NARRATIVE: CASE EVENT DATE: 20191030
